FAERS Safety Report 6040065-7 (Version None)
Quarter: 2009Q1

REPORT INFORMATION
  Report Type: 
  Country: None (occurrence: None)
  Receive Date: 20090116
  Receipt Date: 20080409
  Transmission Date: 20090719
  Serious: No
  Sender: FDA-Public Use
  Company Number: US-BRISTOL-MYERS SQUIBB COMPANY-14001762

PATIENT
  Age: 15 Year
  Sex: Female
  Weight: 48 kg

DRUGS (8)
  1. ABILIFY [Suspect]
     Indication: BIPOLAR I DISORDER
     Route: 048
  2. LAMICTAL [Concomitant]
  3. ALUPENT [Concomitant]
  4. ADVAIR DISKUS 100/50 [Concomitant]
  5. VICODIN [Concomitant]
  6. PHENERGAN HCL [Concomitant]
  7. IBUPROFEN [Concomitant]
  8. TRAZODONE HCL [Concomitant]

REACTIONS (11)
  - ABDOMINAL DISTENSION [None]
  - ANXIETY [None]
  - BLOOD PRESSURE INCREASED [None]
  - FATIGUE [None]
  - FEELING ABNORMAL [None]
  - HEADACHE [None]
  - NAUSEA [None]
  - OEDEMA PERIPHERAL [None]
  - SUICIDAL IDEATION [None]
  - TREMOR [None]
  - WEIGHT INCREASED [None]
